FAERS Safety Report 17140439 (Version 1)
Quarter: 2019Q4

REPORT INFORMATION
  Report Type: Spontaneous
  Country: US (occurrence: US)
  Receive Date: 20191211
  Receipt Date: 20191211
  Transmission Date: 20200122
  Serious: No
  Sender: FDA-Public Use
  Company Number: US-UCBSA-2016011420

PATIENT
  Sex: Male

DRUGS (7)
  1. KEPPRA [Suspect]
     Active Substance: LEVETIRACETAM
     Indication: EPILEPSY
  2. ZONEGRAN [Concomitant]
     Active Substance: ZONISAMIDE
     Indication: EPILEPSY
  3. ZONEGRAN [Concomitant]
     Active Substance: ZONISAMIDE
     Indication: FOCAL DYSCOGNITIVE SEIZURES
  4. KEPPRA [Suspect]
     Active Substance: LEVETIRACETAM
     Indication: PARTIAL SEIZURES
     Dosage: (STRENGTH: 500 MG),1 AND ? IN MORNING AND 2 AND ? IN EVENING
  5. KEPPRA [Suspect]
     Active Substance: LEVETIRACETAM
     Indication: FOCAL DYSCOGNITIVE SEIZURES
  6. PAXIL [Concomitant]
     Active Substance: PAROXETINE HYDROCHLORIDE
     Indication: DEPRESSION
     Dosage: 20 MG IN THE EVENING
     Route: 048
  7. ZONEGRAN [Concomitant]
     Active Substance: ZONISAMIDE
     Indication: PARTIAL SEIZURES
     Dosage: 300 MG AT BEDTIME
     Route: 048

REACTIONS (6)
  - Wrong technique in product usage process [Unknown]
  - Agitation [Unknown]
  - Dysphoria [Unknown]
  - Irritability [Unknown]
  - Product prescribing error [Unknown]
  - Behaviour disorder [Unknown]
